FAERS Safety Report 7707333-1 (Version None)
Quarter: 2011Q3

REPORT INFORMATION
  Report Type: 
  Country: None (occurrence: None)
  Receive Date: 20110824
  Receipt Date: 20110404
  Transmission Date: 20111222
  Serious: No
  Sender: FDA-Public Use
  Company Number: US-MYLANLABS-2011S1007174

PATIENT
  Age: 44 Year
  Sex: Male

DRUGS (4)
  1. LISINOPRIL [Suspect]
     Route: 048
     Dates: start: 20100401, end: 20110301
  2. PROTONIX [Concomitant]
  3. ANTARA (MICRONIZED) [Concomitant]
  4. LISINOPRIL [Suspect]
     Indication: BLOOD PRESSURE INCREASED
     Route: 048
     Dates: start: 20091001, end: 20100401

REACTIONS (1)
  - HYPERSENSITIVITY [None]
